FAERS Safety Report 8123004-4 (Version None)
Quarter: 2012Q1

REPORT INFORMATION
  Report Type: 
  Country: None (occurrence: None)
  Receive Date: 20120208
  Receipt Date: 20120120
  Transmission Date: 20120608
  Serious: Yes (Hospitalization)
  Sender: FDA-Public Use
  Company Number: FR-PFIZER INC-K200900778

PATIENT
  Age: 85 Year
  Sex: Male

DRUGS (9)
  1. ASPIRIN [Suspect]
     Dosage: 160 MG, 1X/DAY
     Route: 048
  2. RAMIPRIL [Suspect]
     Dosage: 10 MG, 1X/DAY
     Route: 048
     Dates: end: 20090511
  3. LORAZEPAM [Suspect]
     Dosage: UNK
  4. ATORVASTATIN [Suspect]
     Dosage: 10 MG, 1X/DAY
     Route: 048
  5. NEXIUM [Suspect]
     Dosage: 20 MG, 1X/DAY
     Route: 048
  6. BUMETANIDE [Concomitant]
  7. NEBIVOLOL HCL [Suspect]
     Dosage: 5 MG, 1X/DAY
     Route: 048
  8. LASIX [Concomitant]
     Dosage: UNK
     Dates: end: 20090512
  9. POTASSIUM CHLORIDE [Concomitant]
     Dosage: 600 MG, UNK
     Route: 048

REACTIONS (5)
  - NEUTROPENIA [None]
  - LEUKOPENIA [None]
  - AUTOIMMUNE THROMBOCYTOPENIA [None]
  - HAEMATOMA [None]
  - RENAL FAILURE [None]
